FAERS Safety Report 16323959 (Version 1)
Quarter: 2019Q2

REPORT INFORMATION
  Report Type: Spontaneous
  Country: GR (occurrence: GR)
  Receive Date: 20190517
  Receipt Date: 20190517
  Transmission Date: 20190711
  Serious: Yes (Other)
  Sender: FDA-Public Use
  Company Number: GR-B.I. PHARMACEUTICALS,INC./RIDGEFIELD-2019-BI-022018

PATIENT
  Age: 69 Year
  Sex: Male

DRUGS (6)
  1. LIPIDIL [Concomitant]
     Active Substance: FENOFIBRATE
     Indication: DYSLIPIDAEMIA
     Route: 065
  2. ATORVASTATIN [Concomitant]
     Active Substance: ATORVASTATIN
     Indication: DYSLIPIDAEMIA
     Route: 065
  3. JARDIANCE [Suspect]
     Active Substance: EMPAGLIFLOZIN
     Indication: TYPE 2 DIABETES MELLITUS
     Route: 048
     Dates: start: 20181009, end: 20190514
  4. COPALIA [Concomitant]
     Active Substance: AMLODIPINE BESYLATE\VALSARTAN
     Indication: HYPERTENSION
     Route: 065
  5. ZOMARIST [Concomitant]
     Active Substance: VILDAGLIPTIN
     Indication: TYPE 2 DIABETES MELLITUS
     Route: 065
  6. SALOSPIR [Concomitant]
     Active Substance: ASPIRIN
     Indication: PRODUCT USED FOR UNKNOWN INDICATION
     Route: 065

REACTIONS (1)
  - Bladder papilloma [Not Recovered/Not Resolved]

NARRATIVE: CASE EVENT DATE: 201902
